FAERS Safety Report 6840118-7 (Version None)
Quarter: 2010Q3

REPORT INFORMATION
  Report Type: 
  Country: None (occurrence: None)
  Receive Date: 20100714
  Receipt Date: 20100709
  Transmission Date: 20110219
  Serious: Yes (Life-Threatening, Hospitalization, Other)
  Sender: FDA-Public Use
  Company Number: US-CELGENEUS-163-21880-10051542

PATIENT
  Sex: Female

DRUGS (6)
  1. REVLIMID [Suspect]
     Indication: MULTIPLE MYELOMA
     Route: 048
     Dates: start: 20100322, end: 20100601
  2. AMLODIPINE BESYLATE [Concomitant]
     Route: 048
  3. FAMOTIDINE [Concomitant]
     Route: 048
  4. LISINOPRIL [Concomitant]
     Route: 048
  5. HYDROCHLOROTHIAZIDE [Concomitant]
     Route: 048
  6. LIPITOR [Concomitant]
     Route: 048

REACTIONS (5)
  - BACK PAIN [None]
  - FAILURE TO THRIVE [None]
  - HYPOVOLAEMIA [None]
  - RENAL FAILURE ACUTE [None]
  - WEIGHT DECREASED [None]
